FAERS Safety Report 9096813 (Version 1)
Quarter: 2013Q1

REPORT INFORMATION
  Report Type: Spontaneous
  Country: US (occurrence: US)
  Receive Date: 20130211
  Receipt Date: 20130211
  Transmission Date: 20140127
  Serious: Yes (Other)
  Sender: FDA-Public Use
  Company Number: US-BAYER-2013-015133

PATIENT
  Age: 20 Year
  Sex: Female
  Weight: 51 kg

DRUGS (3)
  1. YASMIN [Suspect]
  2. NAPROXEN [Concomitant]
  3. DARVOCET [Concomitant]

REACTIONS (2)
  - Deep vein thrombosis [None]
  - Thrombophlebitis superficial [None]
